FAERS Safety Report 13338076 (Version 5)
Quarter: 2017Q3

REPORT INFORMATION
  Report Type: Spontaneous
  Country: US (occurrence: US)
  Receive Date: 20170315
  Receipt Date: 20170828
  Transmission Date: 20171127
  Serious: Yes (Death, Hospitalization)
  Sender: FDA-Public Use
  Company Number: US-JNJFOC-20170315265

PATIENT
  Age: 54 Year
  Sex: Male
  Weight: 103 kg

DRUGS (6)
  1. HYDRALAZINE [Concomitant]
     Active Substance: HYDRALAZINE HYDROCHLORIDE
  2. MONTELUKAST [Concomitant]
     Active Substance: MONTELUKAST SODIUM
  3. HYDROCODONE [Concomitant]
     Active Substance: HYDROCODONE
  4. CYCLOBENZAPRINE. [Concomitant]
     Active Substance: CYCLOBENZAPRINE
  5. IMBRUVICA [Suspect]
     Active Substance: IBRUTINIB
     Indication: CHRONIC LYMPHOCYTIC LEUKAEMIA
     Route: 048
  6. ALBUTEROL. [Concomitant]
     Active Substance: ALBUTEROL

REACTIONS (9)
  - Arthralgia [Unknown]
  - Off label use [Unknown]
  - Incorrect dose administered [Unknown]
  - Skin ulcer [Not Recovered/Not Resolved]
  - Staphylococcal sepsis [Fatal]
  - Hypotension [Unknown]
  - Pneumonia [Not Recovered/Not Resolved]
  - Drug screen positive [Unknown]
  - Dyspnoea [Unknown]

NARRATIVE: CASE EVENT DATE: 201703
